FAERS Safety Report 8092694-7 (Version None)
Quarter: 2012Q1

REPORT INFORMATION
  Report Type: 
  Country: None (occurrence: None)
  Receive Date: 20120128
  Receipt Date: 20110803
  Transmission Date: 20120608
  Serious: No
  Sender: FDA-Public Use
  Company Number: US-ABBOTT-11P-163-0843942-00

PATIENT
  Age: 54 Year
  Sex: Female

DRUGS (6)
  1. FOLIC ACID [Concomitant]
     Indication: VITAMIN SUPPLEMENTATION
  2. CALCIUM [Concomitant]
     Indication: MINERAL SUPPLEMENTATION
  3. MULTIVITAMIN [Concomitant]
     Indication: VITAMIN SUPPLEMENTATION
  4. VITAMIN D [Concomitant]
     Indication: VITAMIN SUPPLEMENTATION
  5. HUMIRA [Suspect]
     Indication: RHEUMATOID ARTHRITIS
     Dates: start: 20101201
  6. METHOTREXATE [Concomitant]
     Indication: RHEUMATOID ARTHRITIS
     Dosage: WEEKLY
     Route: 050

REACTIONS (1)
  - INJECTION SITE PAIN [None]
